FAERS Safety Report 9396572 (Version 4)
Quarter: 2013Q3

REPORT INFORMATION
  Report Type: Spontaneous
  Country: US (occurrence: US)
  Receive Date: 20130711
  Receipt Date: 20130807
  Transmission Date: 20140515
  Serious: No
  Sender: FDA-Public Use
  Company Number: US-BIOGENIDEC-2013BI062437

PATIENT
  Age: 43 Year
  Sex: Female

DRUGS (5)
  1. TYSABRI [Suspect]
     Indication: MULTIPLE SCLEROSIS
     Route: 042
  2. TYSABRI [Suspect]
     Indication: MULTIPLE SCLEROSIS
     Route: 042
     Dates: start: 20120416
  3. TRAMADOL SR [Concomitant]
     Route: 048
  4. TOPAMAZ [Concomitant]
     Indication: MIGRAINE
     Route: 048
  5. MIRTAZAPINE [Concomitant]
     Route: 048

REACTIONS (7)
  - Tooth extraction [Recovered/Resolved]
  - Tooth infection [Unknown]
  - Swelling face [Recovered/Resolved]
  - Pain [Recovered/Resolved]
  - Gingivitis [Recovered/Resolved]
  - Procedural pain [Not Recovered/Not Resolved]
  - Headache [Not Recovered/Not Resolved]
